FAERS Safety Report 6680291-7 (Version None)
Quarter: 2010Q2

REPORT INFORMATION
  Report Type: 
  Country: None (occurrence: None)
  Receive Date: 20100413
  Receipt Date: 20100409
  Transmission Date: 20101027
  Serious: Yes (Other)
  Sender: FDA-Public Use
  Company Number: GB-MERCK-0909GBR00096

PATIENT
  Age: 67 Year
  Sex: Male
  Weight: 76 kg

DRUGS (3)
  1. FOSAMAX [Suspect]
     Indication: SPINAL FRACTURE
     Route: 048
     Dates: start: 20000101, end: 20030101
  2. ZOLEDRONATE DISODIUM [Suspect]
     Route: 065
     Dates: start: 20030101, end: 20040101
  3. IBANDRONATE SODIUM [Suspect]
     Route: 065
     Dates: start: 20040101, end: 20080101

REACTIONS (3)
  - FEMUR FRACTURE [None]
  - IMPAIRED HEALING [None]
  - PAIN [None]
